FAERS Safety Report 7638667-7 (Version None)
Quarter: 2011Q3

REPORT INFORMATION
  Report Type: 
  Country: None (occurrence: None)
  Receive Date: 20110720
  Receipt Date: 20110707
  Transmission Date: 20111222
  Serious: Yes (Hospitalization, Other)
  Sender: FDA-Public Use
  Company Number: 2011P1007617

PATIENT
  Age: 75 Year
  Sex: Female

DRUGS (1)
  1. ALBENZA [Suspect]
     Indication: HEPATIC ECHINOCOCCIASIS
     Dosage: 600 MG;QD;PO
     Route: 048
     Dates: start: 20100823, end: 20101124

REACTIONS (7)
  - BLOOD LACTATE DEHYDROGENASE INCREASED [None]
  - JAUNDICE [None]
  - ASPARTATE AMINOTRANSFERASE INCREASED [None]
  - BLOOD ALKALINE PHOSPHATASE INCREASED [None]
  - HYPERBILIRUBINAEMIA [None]
  - ALANINE AMINOTRANSFERASE INCREASED [None]
  - LIVER DISORDER [None]
